FAERS Safety Report 26110911 (Version 2)
Quarter: 2025Q4

REPORT INFORMATION
  Report Type: Spontaneous
  Country: US (occurrence: US)
  Receive Date: 20251202
  Receipt Date: 20251217
  Transmission Date: 20260119
  Serious: Yes (Other)
  Sender: MICRO LABS LIMITED
  Company Number: US-MLMSERVICE-20251117-PI714646-00217-2

PATIENT
  Age: 24 Year
  Sex: Female

DRUGS (1)
  1. METFORMIN [Suspect]
     Active Substance: METFORMIN HYDROCHLORIDE
     Indication: Adjuvant therapy
     Route: 048

REACTIONS (6)
  - Toxicity to various agents [Unknown]
  - Hypoglycaemia [Recovered/Resolved]
  - Mental status changes [Unknown]
  - Blood lactic acid increased [Unknown]
  - Intentional overdose [Unknown]
  - Off label use [Unknown]
